FAERS Safety Report 20984933 (Version 1)
Quarter: 2022Q2

REPORT INFORMATION
  Report Type: Spontaneous
  Country: US (occurrence: None)
  Receive Date: 20220621
  Receipt Date: 20220621
  Transmission Date: 20220721
  Serious: No
  Sender: FDA-Public Use
  Company Number: US-ROCHE-2994453

PATIENT
  Sex: Male

DRUGS (1)
  1. XELODA [Suspect]
     Active Substance: CAPECITABINE
     Indication: Product used for unknown indication
     Dosage: TAKE 4 TAB BY MOUTH TWICE A DAY FOR 2 WEEKS ON TREATMENT ,1 WEEK OFF
     Route: 048

REACTIONS (1)
  - Lung disorder [Unknown]
